FAERS Safety Report 9331436 (Version 1)
Quarter: 2013Q2

REPORT INFORMATION
  Report Type: Spontaneous
  Country: CN (occurrence: CN)
  Receive Date: 20130605
  Receipt Date: 20130605
  Transmission Date: 20140414
  Serious: Yes (Other)
  Sender: FDA-Public Use
  Company Number: CN-ASTRAZENECA-2013SE39927

PATIENT
  Age: 146 Month
  Sex: Male

DRUGS (1)
  1. PULMICORT TURBUHALER [Suspect]
     Indication: ASTHMA
     Route: 055
     Dates: start: 20110101, end: 20120719

REACTIONS (5)
  - Tonsillar hypertrophy [Unknown]
  - Pyrexia [Recovered/Resolved]
  - Leukopenia [Recovered/Resolved]
  - Cough [Not Recovered/Not Resolved]
  - Pharyngeal erythema [Not Recovered/Not Resolved]
